FAERS Safety Report 25681734 (Version 1)
Quarter: 2025Q3

REPORT INFORMATION
  Report Type: Other
  Country: GB (occurrence: GB)
  Receive Date: 20250814
  Receipt Date: 20250814
  Transmission Date: 20251020
  Serious: Yes (Disabling, Other)
  Sender: GLENMARK
  Company Number: None

PATIENT
  Age: 61 Year
  Sex: Male

DRUGS (1)
  1. PRAMIPEXOLE DIHYDROCHLORIDE [Suspect]
     Active Substance: PRAMIPEXOLE DIHYDROCHLORIDE
     Indication: Product used for unknown indication
     Route: 065

REACTIONS (7)
  - Rapid-onset dystonia-parkinsonism [Recovered/Resolved with Sequelae]
  - Consciousness fluctuating [Not Recovered/Not Resolved]
  - Dysstasia [Unknown]
  - Weight bearing difficulty [Unknown]
  - Pain in extremity [Unknown]
  - Gait disturbance [Unknown]
  - Peripheral swelling [Unknown]
